FAERS Safety Report 5708340-0 (Version None)
Quarter: 2008Q2

REPORT INFORMATION
  Report Type: 
  Country: None (occurrence: None)
  Receive Date: 20080417
  Receipt Date: 20080410
  Transmission Date: 20081010
  Serious: Yes (Disabling, Other)
  Sender: FDA-Public Use
  Company Number: JP-PFIZER INC-2007096971

PATIENT
  Sex: Male
  Weight: 72 kg

DRUGS (10)
  1. LIPITOR [Suspect]
     Indication: HYPERCHOLESTEROLAEMIA
     Route: 048
     Dates: start: 20020415, end: 20071105
  2. ZYLORIC ^FAES^ [Suspect]
     Indication: HYPERURICAEMIA
     Route: 048
     Dates: start: 20020527, end: 20071105
  3. ASPIRIN [Concomitant]
     Route: 048
  4. NU LOTAN [Concomitant]
     Route: 048
  5. MEXITIL [Concomitant]
     Route: 048
  6. JUVELA [Concomitant]
     Route: 048
  7. COMELIAN [Concomitant]
     Route: 048
  8. TERNELIN [Concomitant]
     Route: 048
  9. CINAL [Concomitant]
     Route: 048
  10. DEPAS [Concomitant]
     Route: 048

REACTIONS (2)
  - MYELODYSPLASTIC SYNDROME [None]
  - PANCYTOPENIA [None]
